FAERS Safety Report 13158817 (Version 1)
Quarter: 2017Q1

REPORT INFORMATION
  Report Type: Spontaneous
  Country: FR (occurrence: FR)
  Receive Date: 20170127
  Receipt Date: 20170127
  Transmission Date: 20170428
  Serious: Yes (Hospitalization)
  Sender: FDA-Public Use
  Company Number: FR-NOVOPROD-528307

PATIENT
  Age: 82 Year
  Sex: Female

DRUGS (18)
  1. LASILIX                            /00032601/ [Concomitant]
     Active Substance: FUROSEMIDE
     Dosage: 40 MG, QD
  2. CORDARONE [Concomitant]
     Active Substance: AMIODARONE HYDROCHLORIDE
     Dosage: 200 MG (200 MG IN MORNING ONE DAY/TWO DAYS)
  3. MIRTAZAPINE. [Concomitant]
     Active Substance: MIRTAZAPINE
  4. NOVONORM [Suspect]
     Active Substance: REPAGLINIDE
     Indication: TYPE 2 DIABETES MELLITUS
     Dosage: 3 MG, QD
     Route: 048
     Dates: end: 201611
  5. ONGLYZA [Suspect]
     Active Substance: SAXAGLIPTIN HYDROCHLORIDE
     Indication: TYPE 2 DIABETES MELLITUS
     Dosage: 1 DF, QD
     Route: 048
     Dates: start: 201511, end: 201611
  6. SECTRAL [Concomitant]
     Active Substance: ACEBUTOLOL HYDROCHLORIDE
     Dosage: 200 MG (0.5 DF IN MORNING AND 0.5 DF IN EVENING)
  7. PARACETAMOL [Concomitant]
     Active Substance: ACETAMINOPHEN
     Dosage: FROM 2 TO 6 CAPSULES DAILY
  8. LAMALINE                           /00764901/ [Concomitant]
     Active Substance: ACETAMINOPHEN\BELLADONNA LEAF\CAFFEINE\MORPHINE
     Dosage: FROM 2 TO 6 CAPSULES DAILY
  9. INSULIN RAPID [Concomitant]
     Active Substance: INSULIN NOS
  10. INSULIN GLARGINE [Concomitant]
     Active Substance: INSULIN GLARGINE
     Dosage: UNK
  11. RAMIPRIL. [Suspect]
     Active Substance: RAMIPRIL
     Indication: HYPERTENSION
     Dosage: 5 MG, QD
     Route: 048
     Dates: end: 201611
  12. NITRIDERM [Concomitant]
     Active Substance: NITROGLYCERIN
     Dosage: 5 MG, QD
  13. ELISOR [Concomitant]
     Active Substance: PRAVASTATIN SODIUM
     Dosage: 40 MG, QD
  14. OPIUM                              /00036301/ [Concomitant]
     Active Substance: OPIUM
     Dosage: FROM 2 TO 6 CAPSULES DAILY
  15. AMIODARONE [Concomitant]
     Active Substance: AMIODARONE
  16. PRAVASTATIN. [Concomitant]
     Active Substance: PRAVASTATIN
  17. NORSET [Suspect]
     Active Substance: MIRTAZAPINE
     Indication: DEPRESSION
     Dosage: 30 MG, QD
     Route: 048
     Dates: end: 201611
  18. COUMADINE [Concomitant]
     Active Substance: WARFARIN SODIUM
     Dosage: 2 MG (1.5 DF IN EVENING),

REACTIONS (1)
  - Dermatitis bullous [Recovered/Resolved]

NARRATIVE: CASE EVENT DATE: 2016
